FAERS Safety Report 4475222-4 (Version None)
Quarter: 2004Q4

REPORT INFORMATION
  Report Type: 
  Country: None (occurrence: None)
  Receive Date: 20041012
  Receipt Date: 20040928
  Transmission Date: 20050328
  Serious: Yes (Other)
  Sender: FDA-Public Use
  Company Number: 2004236023IN

PATIENT
  Age: 25 Year
  Sex: Female

DRUGS (1)
  1. DINOPROSTON GEL (DINOPROSTONE) GEL, 0.5MG [Suspect]
     Indication: LABOUR INDUCTION
     Dosage: 0.5 MG, SINGLE, INTRACERVICAL
     Route: 019

REACTIONS (7)
  - CYANOSIS [None]
  - DIARRHOEA [None]
  - DRUG EXPOSURE DURING PREGNANCY [None]
  - OXYGEN SATURATION DECREASED [None]
  - PROCEDURAL COMPLICATION [None]
  - PYREXIA [None]
  - VOMITING [None]
